FAERS Safety Report 15567082 (Version 1)
Quarter: 2018Q4

REPORT INFORMATION
  Report Type: Spontaneous
  Country: AU (occurrence: AU)
  Receive Date: 20181030
  Receipt Date: 20181030
  Transmission Date: 20190205
  Serious: Yes (Hospitalization)
  Sender: FDA-Public Use
  Company Number: AU-TASMAN PHARMA, INC.-2018TSM00169

PATIENT
  Age: 47 Year
  Sex: Male

DRUGS (1)
  1. CLOZAPINE. [Suspect]
     Active Substance: CLOZAPINE
     Indication: SCHIZOPHRENIA
     Dosage: UNK
     Route: 065

REACTIONS (7)
  - Left ventricular failure [Recovering/Resolving]
  - Myocarditis [Recovering/Resolving]
  - Pleural effusion [Recovering/Resolving]
  - Hyponatraemia [Recovering/Resolving]
  - Systemic inflammatory response syndrome [Recovering/Resolving]
  - Pulmonary embolism [Recovering/Resolving]
  - Congestive cardiomyopathy [Recovering/Resolving]
